FAERS Safety Report 9521678 (Version 1)
Quarter: 2013Q1

REPORT INFORMATION
  Report Type: Spontaneous
  Country: US (occurrence: None)
  Receive Date: 20130305
  Receipt Date: 20130305
  Transmission Date: 20140127
  Serious: Yes (Hospitalization)
  Sender: FDA-Public Use
  Company Number: 163-21880-12011487

PATIENT
  Age: 77 Year
  Sex: Male

DRUGS (2)
  1. REVLIMID (LENALIDOMIDE) (25 MILLIGRAM, CAPSULES) [Suspect]
     Indication: PLASMA CELL MYELOMA
     Dates: start: 201111
  2. VELCADE (BORTEZOMIB) [Concomitant]

REACTIONS (3)
  - Dehydration [None]
  - Diarrhoea [None]
  - Vomiting [None]
